FAERS Safety Report 15337454 (Version 2)
Quarter: 2018Q3

REPORT INFORMATION
  Report Type: Spontaneous
  Country: US (occurrence: US)
  Receive Date: 20180831
  Receipt Date: 20180925
  Transmission Date: 20181010
  Serious: Yes (Death, Other)
  Sender: FDA-Public Use
  Company Number: US-STRIDES ARCOLAB LIMITED-2018SP007251

PATIENT

DRUGS (3)
  1. PENTAMIDINE [Concomitant]
     Active Substance: PENTAMIDINE
     Indication: PROPHYLAXIS
  2. TACROLIMUS. [Suspect]
     Active Substance: TACROLIMUS
     Indication: ACUTE LYMPHOCYTIC LEUKAEMIA
     Dosage: UNK
     Route: 065
  3. PENTAMIDINE [Concomitant]
     Active Substance: PENTAMIDINE
     Indication: PNEUMOCYSTIS JIROVECII PNEUMONIA
     Dosage: 3.7 MG/KG/DOSE EVERY 4 WEEKS
     Route: 042

REACTIONS (8)
  - Thrombotic thrombocytopenic purpura [Unknown]
  - Hypoxia [Unknown]
  - Tachypnoea [Unknown]
  - Off label use [Unknown]
  - Neonatal respiratory distress [Unknown]
  - Pulmonary alveolar haemorrhage [Fatal]
  - Respiratory failure [Unknown]
  - Stridor [Unknown]
